FAERS Safety Report 22288339 (Version 1)
Quarter: 2023Q2

REPORT INFORMATION
  Report Type: Report from Study
  Country: US (occurrence: None)
  Receive Date: 20230505
  Receipt Date: 20230505
  Transmission Date: 20230722
  Serious: Yes (Other)
  Sender: FDA-Public Use
  Company Number: 2023A104156

PATIENT
  Sex: Male

DRUGS (1)
  1. CALQUENCE [Suspect]
     Active Substance: ACALABRUTINIB
     Indication: Chronic lymphocytic leukaemia
     Route: 048

REACTIONS (6)
  - Oral pain [Unknown]
  - Impaired healing [Unknown]
  - Immunoglobulins decreased [Unknown]
  - Platelet count decreased [Unknown]
  - Immunodeficiency [Unknown]
  - Full blood count abnormal [Unknown]
